FAERS Safety Report 7927046-0 (Version None)
Quarter: 2011Q4

REPORT INFORMATION
  Report Type: 
  Country: None (occurrence: None)
  Receive Date: 20111118
  Receipt Date: 20111110
  Transmission Date: 20120403
  Serious: Yes (Hospitalization)
  Sender: FDA-Public Use
  Company Number: JP-BRISTOL-MYERS SQUIBB COMPANY-16229247

PATIENT
  Age: 60 Year
  Sex: Female
  Weight: 50 kg

DRUGS (15)
  1. ORENCIA [Suspect]
     Indication: RHEUMATOID ARTHRITIS
     Dosage: 20APR11,16MAY11,13JUN11,11JUL11,15AUG11,12SEP11.
     Route: 041
     Dates: start: 20110406
  2. RABEPRAZOLE SODIUM [Concomitant]
  3. MECOBALAMIN [Concomitant]
  4. TOCILIZUMAB [Concomitant]
  5. ASPIRIN [Concomitant]
  6. HYALEIN [Concomitant]
  7. CHINESE HERBS [Concomitant]
  8. PREDNISOLONE [Concomitant]
     Indication: RHEUMATOID ARTHRITIS
     Dosage: 11MAY11-20MG,16MAY11-10MG,15AUG11-7.5MG,12SEP11-5MG/DAY.
     Route: 048
  9. KETOPROFEN [Concomitant]
  10. TACROLIMUS [Concomitant]
     Indication: RHEUMATOID ARTHRITIS
  11. MUCOSTA [Concomitant]
     Indication: PROPHYLAXIS
  12. PIRENOXINE SODIUM [Concomitant]
  13. LOSARTAN POTASSIUM AND HYDROCHLOROTHIAZIDE [Concomitant]
  14. LEVOTHYROXINE SODIUM [Concomitant]
  15. MAGMITT [Concomitant]

REACTIONS (7)
  - ENTERITIS [None]
  - GASTROINTESTINAL HYPOMOTILITY [None]
  - ILEUS [None]
  - INTESTINAL OBSTRUCTION [None]
  - HYPOTENSION [None]
  - DEHYDRATION [None]
  - RADIATION INJURY [None]
